FAERS Safety Report 17773639 (Version 1)
Quarter: 2020Q2

REPORT INFORMATION
  Report Type: Spontaneous
  Country: CH (occurrence: CH)
  Receive Date: 20200513
  Receipt Date: 20200513
  Transmission Date: 20200714
  Serious: Yes (Death)
  Sender: FDA-Public Use
  Company Number: CH-REGENERON PHARMACEUTICALS, INC.-2020-36833

PATIENT

DRUGS (1)
  1. EYLEA [Suspect]
     Active Substance: AFLIBERCEPT
     Indication: NEOVASCULAR AGE-RELATED MACULAR DEGENERATION
     Dosage: DOSE AND FREQUENCY UNKNOWN; TREATED EYE LEFT; TOTAL NUMBER OF DOSES UNKNOWN
     Route: 031
     Dates: start: 20170412

REACTIONS (1)
  - Death [Fatal]
